FAERS Safety Report 4839775-6 (Version None)
Quarter: 2005Q4

REPORT INFORMATION
  Report Type: 
  Country: None (occurrence: None)
  Receive Date: 20051129
  Receipt Date: 20050826
  Transmission Date: 20060501
  Serious: No
  Sender: FDA-Public Use
  Company Number: US-GLAXOSMITHKLINE-A0571990A

PATIENT
  Age: 80 Year
  Sex: Female

DRUGS (11)
  1. WELLBUTRIN SR [Suspect]
     Indication: DEPRESSION
     Dosage: 150MG TWICE PER DAY
     Route: 048
     Dates: start: 20050723, end: 20050829
  2. CARBIDOPA [Suspect]
     Indication: PARKINSON'S DISEASE
     Dosage: 25MG THREE TIMES PER DAY
     Route: 048
  3. LEVOXYL [Concomitant]
  4. OXYBUTYNIN [Concomitant]
  5. EFFEXOR [Concomitant]
  6. DEPAKOTE [Concomitant]
  7. LOVASTATIN [Concomitant]
  8. STOOL SOFTENER [Concomitant]
  9. METAMUCIL [Concomitant]
  10. RANITIDINE [Concomitant]
  11. TRAZODONE [Concomitant]

REACTIONS (3)
  - BALANCE DISORDER [None]
  - DIFFICULTY IN WALKING [None]
  - TREMOR [None]
